FAERS Safety Report 6682263-5 (Version None)
Quarter: 2010Q2

REPORT INFORMATION
  Report Type: 
  Country: None (occurrence: None)
  Receive Date: 20100414
  Receipt Date: 20100414
  Transmission Date: 20101027
  Serious: Yes (Other)
  Sender: FDA-Public Use
  Company Number: None

PATIENT
  Age: 72 Year
  Sex: Female
  Weight: 92.9874 kg

DRUGS (1)
  1. LOVENOX [Suspect]
     Indication: THROMBOSIS
     Dates: start: 20090416, end: 20090417

REACTIONS (5)
  - DRY SKIN [None]
  - ERYTHEMA [None]
  - INCORRECT ROUTE OF DRUG ADMINISTRATION [None]
  - MEDICATION ERROR [None]
  - PRURITUS [None]
